FAERS Safety Report 24050965 (Version 1)
Quarter: 2024Q3

REPORT INFORMATION
  Report Type: Report from Study
  Country: US (occurrence: None)
  Receive Date: 20240704
  Receipt Date: 20240704
  Transmission Date: 20241016
  Serious: Yes (Hospitalization)
  Sender: ASTRAZENECA
  Company Number: 2024A149025

PATIENT
  Sex: Male

DRUGS (14)
  1. TAGRISSO [Suspect]
     Active Substance: OSIMERTINIB
     Indication: Non-small cell lung cancer
     Route: 048
     Dates: start: 20230425
  2. ALBUTEROL [Concomitant]
     Active Substance: ALBUTEROL
  3. ALLEGRA [Concomitant]
     Active Substance: FEXOFENADINE HYDROCHLORIDE
  4. ASPIRIN [Concomitant]
     Active Substance: ASPIRIN
  5. COLLAGEN [Concomitant]
     Active Substance: COLLAGEN
  6. DRONABINOL [Concomitant]
     Active Substance: DRONABINOL
  7. LEVALBUTEROL [Concomitant]
     Active Substance: LEVALBUTEROL
  8. LOPERAMIDE [Concomitant]
     Active Substance: LOPERAMIDE
  9. MEGESTROL [Concomitant]
     Active Substance: MEGESTROL
  10. OMEPRAZOLE [Concomitant]
     Active Substance: OMEPRAZOLE
  11. PAROXETINE [Concomitant]
     Active Substance: PAROXETINE
  12. PROMETHAZINE [Concomitant]
     Active Substance: PROMETHAZINE HYDROCHLORIDE
  13. SYNTHROID [Concomitant]
     Active Substance: LEVOTHYROXINE SODIUM
  14. TRELEGY ELLIPTA [Concomitant]
     Active Substance: FLUTICASONE FUROATE\UMECLIDINIUM BROMIDE\VILANTEROL TRIFENATATE

REACTIONS (2)
  - Osteoporosis [Recovering/Resolving]
  - Spinal compression fracture [Recovering/Resolving]
